FAERS Safety Report 4372185-7 (Version None)
Quarter: 2004Q2

REPORT INFORMATION
  Report Type: 
  Country: None (occurrence: None)
  Receive Date: 20040607
  Receipt Date: 20040527
  Transmission Date: 20050107
  Serious: Yes (Other)
  Sender: FDA-Public Use
  Company Number: JP-GLAXOSMITHKLINE-B0333965A

PATIENT
  Age: 66 Year
  Sex: Female

DRUGS (6)
  1. ALKERAN [Suspect]
     Indication: CHEMOTHERAPY
     Dosage: 260MG PER DAY
     Route: 042
     Dates: start: 20040510, end: 20040510
  2. KYTRIL [Concomitant]
     Route: 065
  3. LASIX [Concomitant]
     Route: 065
  4. NEUTROGIN [Concomitant]
  5. ZOVIRAX [Concomitant]
     Route: 065
  6. CRAVIT [Concomitant]
     Route: 065

REACTIONS (1)
  - CONVULSION [None]
